FAERS Safety Report 6934217-9 (Version None)
Quarter: 2010Q3

REPORT INFORMATION
  Report Type: 
  Country: None (occurrence: None)
  Receive Date: 20100820
  Receipt Date: 20100809
  Transmission Date: 20110219
  Serious: Yes (Hospitalization)
  Sender: FDA-Public Use
  Company Number: FR-ELI_LILLY_AND_COMPANY-FR201008002201

PATIENT
  Sex: Female

DRUGS (11)
  1. GEMZAR [Suspect]
     Dosage: 1000 MG, UNKNOWN
     Route: 042
     Dates: start: 20090601
  2. AVASTIN [Concomitant]
     Dosage: 25 MG/ML, UNK
     Route: 042
     Dates: start: 20070401
  3. PREVISCAN [Concomitant]
     Dosage: 20 MG, UNKNOWN
     Route: 065
  4. MOTILIUM [Concomitant]
     Dosage: UNK, UNKNOWN
     Route: 065
  5. OMEPRAZOLE [Concomitant]
     Dosage: UNK, UNKNOWN
     Route: 065
  6. TRANZINE [Concomitant]
     Dosage: UNK, UNKNOWN
     Route: 065
  7. STILNOX [Concomitant]
     Dosage: 10 MG, UNKNOWN
     Route: 065
  8. RIVOTRIL [Concomitant]
     Dosage: UNK, UNKNOWN
     Route: 065
  9. ALDACTONE [Concomitant]
     Dosage: UNK, UNKNOWN
     Route: 065
  10. EXFORGE [Concomitant]
     Dosage: UNK, UNKNOWN
     Route: 065
  11. TEMERIT [Concomitant]
     Dosage: UNK, UNKNOWN
     Route: 065

REACTIONS (1)
  - THROMBOTIC MICROANGIOPATHY [None]
